FAERS Safety Report 20896113 (Version 1)
Quarter: 2022Q2

REPORT INFORMATION
  Report Type: Spontaneous
  Country: US (occurrence: None)
  Receive Date: 20220531
  Receipt Date: 20220531
  Transmission Date: 20220721
  Serious: Yes (Hospitalization)
  Sender: FDA-Public Use
  Company Number: None

PATIENT
  Age: 68 Year
  Sex: Male
  Weight: 76.7 kg

DRUGS (14)
  1. WELIREG [Suspect]
     Active Substance: BELZUTIFAN
     Dosage: FREQUENCY : DAILY;?
     Route: 048
     Dates: start: 202110
  2. TYLENOL [Concomitant]
     Active Substance: ACETAMINOPHEN
  3. ALFUZOSIN HCI ER [Concomitant]
  4. BIOTIN [Concomitant]
  5. VITAMIN D [Concomitant]
  6. VITAMIN B12 [Concomitant]
     Active Substance: CYANOCOBALAMIN
  7. COLACE [Concomitant]
  8. FLONASE ALLERGY RELIEF [Concomitant]
  9. LINZESS [Concomitant]
  10. METFORMIN HCI [Concomitant]
  11. MULTIVITAMIN ADULT [Concomitant]
  12. MIRALAX MIX-IN [Concomitant]
  13. TRAMADOL HCI [Concomitant]
  14. TRULICITY [Concomitant]

REACTIONS (1)
  - Hospitalisation [None]
